FAERS Safety Report 9989106 (Version 2)
Quarter: 2014Q1

REPORT INFORMATION
  Report Type: Report from Study
  Country: PR (occurrence: PR)
  Receive Date: 20140310
  Receipt Date: 20140310
  Transmission Date: 20141002
  Serious: No
  Sender: FDA-Public Use
  Company Number: PR-ABBVIE-12P-131-0910396-00

PATIENT
  Sex: Male
  Weight: 66.28 kg

DRUGS (3)
  1. HUMIRA 40 MG/0.8 ML PEN [Suspect]
     Indication: RHEUMATOID ARTHRITIS
     Route: 058
  2. HUMIRA 40 MG/ 0.8 ML PRE-FILLED SYRINGE [Suspect]
     Indication: RHEUMATOID ARTHRITIS
     Route: 058
     Dates: start: 2012
  3. NAPROXEN [Concomitant]
     Indication: MIGRAINE
     Route: 048

REACTIONS (3)
  - Injection site erythema [Unknown]
  - Migraine [Recovered/Resolved]
  - Injection site reaction [Recovered/Resolved]
